FAERS Safety Report 4408490-5 (Version None)
Quarter: 2004Q3

REPORT INFORMATION
  Report Type: 
  Country: None (occurrence: None)
  Receive Date: 20040723
  Receipt Date: 20031208
  Transmission Date: 20050211
  Serious: Yes (Hospitalization)
  Sender: FDA-Public Use
  Company Number: 6878

PATIENT
  Age: 37 Year
  Sex: Female

DRUGS (7)
  1. METHOTREXATE [Suspect]
     Indication: RHEUMATOID ARTHRITIS
     Dosage: SC
     Route: 058
     Dates: start: 20010101, end: 20030429
  2. ANAKINRA [Suspect]
     Indication: RHEUMATOID ARTHRITIS
     Dosage: 100 MG, SC
     Route: 058
     Dates: start: 20021111, end: 20030429
  3. PREDNISONE [Suspect]
     Indication: RHEUMATOID ARTHRITIS
     Dates: start: 20010101, end: 20030429
  4. ALENDRONATE SODIUM [Concomitant]
  5. CALCIUM [Concomitant]
  6. PAROXETINE HYDROCHLORIDE [Concomitant]
  7. ACETAMINOPHEN [Concomitant]

REACTIONS (4)
  - ERYSIPELAS [None]
  - HERPES ZOSTER [None]
  - PHARYNGITIS STREPTOCOCCAL [None]
  - RHEUMATOID ARTHRITIS [None]
